FAERS Safety Report 7722155-3 (Version None)
Quarter: 2011Q3

REPORT INFORMATION
  Report Type: 
  Country: None (occurrence: None)
  Receive Date: 20110831
  Receipt Date: 20110718
  Transmission Date: 20111222
  Serious: Yes (Hospitalization)
  Sender: FDA-Public Use
  Company Number: US-BAYER-200922888NA

PATIENT
  Age: 30 Year
  Sex: Female
  Weight: 108 kg

DRUGS (14)
  1. SODIUM CHLORIDE [Concomitant]
     Indication: JOINT INJURY
     Dosage: GIVEN WITH 1 CC OF MAGNEVIST
     Route: 014
     Dates: start: 20090429, end: 20090429
  2. RISPERDAL [Concomitant]
  3. NAPROSYN [Concomitant]
  4. MAGNEVIST [Suspect]
     Indication: JOINT INJURY
     Dosage: 1 CC DILUTED WITH 10 CC OF 0.9 % NORMAL SALINE
     Route: 014
     Dates: start: 20090429, end: 20090429
  5. SODIUM CHLORIDE [Concomitant]
     Indication: ARTHROGRAM
  6. AMBIEN [Concomitant]
  7. OPTIRAY 350 [Suspect]
     Indication: X-RAY LIMB
  8. MAGNEVIST [Suspect]
     Indication: ARTHROGRAM
     Dosage: UNK
     Dates: start: 20040206, end: 20040206
  9. LIDOCAINE [Concomitant]
     Indication: X-RAY LIMB
  10. SOMA [Concomitant]
  11. VICODIN [Concomitant]
     Indication: PAIN
  12. OPTIRAY 350 [Suspect]
     Indication: JOINT INJURY
     Dosage: 5-10 ML
     Route: 014
     Dates: start: 20090429, end: 20090429
  13. LIDOCAINE [Concomitant]
     Indication: JOINT INJURY
     Route: 014
     Dates: start: 20090429, end: 20090429
  14. BUSPIRONE [Concomitant]

REACTIONS (4)
  - SEPTIC ARTHRITIS STAPHYLOCOCCAL [None]
  - PAIN [None]
  - INJURY [None]
  - ANXIETY [None]
